FAERS Safety Report 4734291-4 (Version None)
Quarter: 2005Q3

REPORT INFORMATION
  Report Type: 
  Country: None (occurrence: None)
  Receive Date: 20050802
  Receipt Date: 20050722
  Transmission Date: 20060218
  Serious: Yes (Other)
  Sender: FDA-Public Use
  Company Number: KII-2005-0017707

PATIENT
  Age: 74 Year
  Sex: Male

DRUGS (1)
  1. MORPHINE SULFATE [Suspect]
     Indication: PAIN
     Dosage: SEE TEXT, PARENTERAL
     Route: 051

REACTIONS (5)
  - AMNESIA [None]
  - COMA [None]
  - DYSPNOEA [None]
  - MEDICATION ERROR [None]
  - VISUAL DISTURBANCE [None]
